FAERS Safety Report 7753667 (Version 4)
Quarter: 2013Q4

REPORT INFORMATION
  Report Type: Report from Study
  Country: CA (occurrence: CA)
  Receive Date: 20110110
  Receipt Date: 20131003
  Transmission Date: 20140711
  Serious: Yes (Death, Other)
  Sender: FDA-Public Use
  Company Number: PHHY2010CA89686

PATIENT
  Age: 61 Year
  Sex: Male

DRUGS (4)
  1. SANDOSTATIN LAR [Suspect]
     Indication: PANCREATIC NEUROENDOCRINE TUMOUR
     Dosage: 30 MG, EVERY 4 WEEKS
     Route: 030
     Dates: start: 20100920
  2. METFORMIN [Concomitant]
  3. INSULIN [Concomitant]
  4. APO-MINOCYCLINE [Concomitant]

REACTIONS (8)
  - Death [Fatal]
  - Furuncle [Unknown]
  - Depressed mood [Unknown]
  - Weight decreased [Unknown]
  - Diarrhoea [Unknown]
  - Headache [Unknown]
  - Fatigue [Unknown]
  - Asthenia [Unknown]
